FAERS Safety Report 15711822 (Version 2)
Quarter: 2018Q4

REPORT INFORMATION
  Report Type: Spontaneous
  Country: US (occurrence: US)
  Receive Date: 20181212
  Receipt Date: 20181217
  Transmission Date: 20190205
  Serious: No
  Sender: FDA-Public Use
  Company Number: US-SHIRE-US201847822

PATIENT
  Age: 56 Year
  Sex: Female
  Weight: 48.98 kg

DRUGS (2)
  1. XIIDRA [Suspect]
     Active Substance: LIFITEGRAST
     Indication: OFF LABEL USE
     Dosage: 1 GTT, 2X/DAY:BID
     Route: 047
     Dates: start: 2018
  2. XIIDRA [Suspect]
     Active Substance: LIFITEGRAST
     Indication: SJOGREN^S SYNDROME
     Dosage: 1 GTT, 2X/DAY:BID
     Route: 047
     Dates: start: 2018

REACTIONS (10)
  - Tremor [Unknown]
  - Pain [Unknown]
  - Product colour issue [Unknown]
  - Cerebral disorder [Unknown]
  - Instillation site pain [Unknown]
  - Off label use [Not Recovered/Not Resolved]
  - Frustration tolerance decreased [Unknown]
  - Instillation site pain [Unknown]
  - Fear [Unknown]
  - Inappropriate schedule of product administration [Unknown]

NARRATIVE: CASE EVENT DATE: 2018
